FAERS Safety Report 9178362 (Version 1)
Quarter: 2013Q1

REPORT INFORMATION
  Report Type: Spontaneous
  Country: US (occurrence: US)
  Receive Date: 20130321
  Receipt Date: 20130321
  Transmission Date: 20140127
  Serious: Yes (Death)
  Sender: FDA-Public Use
  Company Number: US-SANOFI-AVENTIS-2013SA028510

PATIENT
  Sex: 0

DRUGS (2)
  1. PLAVIX [Suspect]
     Dates: start: 200307
  2. ASPIRIN [Suspect]
     Dates: start: 200307

REACTIONS (1)
  - Gastrointestinal haemorrhage [Fatal]
